FAERS Safety Report 22709066 (Version 3)
Quarter: 2024Q4

REPORT INFORMATION
  Report Type: Spontaneous
  Country: CA (occurrence: CA)
  Receive Date: 20230717
  Receipt Date: 20241119
  Transmission Date: 20250115
  Serious: Yes (Hospitalization, Other)
  Sender: PFIZER
  Company Number: CA-PFIZER INC-202300249313

PATIENT
  Age: 91 Year
  Sex: Male

DRUGS (1)
  1. VYNDAQEL [Suspect]
     Active Substance: TAFAMIDIS MEGLUMINE
     Indication: Cardiac amyloidosis
     Dosage: 80 MG, 1X/DAY
     Route: 048
     Dates: start: 20220830

REACTIONS (18)
  - Cardiac failure chronic [Not Recovered/Not Resolved]
  - Arthralgia [Not Recovered/Not Resolved]
  - Infection [Unknown]
  - Cardiac failure chronic [Not Recovered/Not Resolved]
  - Aortic arteriosclerosis [Unknown]
  - Mitral valve incompetence [Unknown]
  - Mitral valve incompetence [Unknown]
  - Tricuspid valve incompetence [Unknown]
  - Hypokinesia [Unknown]
  - Left ventricular dysfunction [Unknown]
  - Dilatation atrial [Unknown]
  - Sinus bradycardia [Unknown]
  - Heart rate irregular [Unknown]
  - Cardiac hypertrophy [Unknown]
  - Ejection fraction decreased [Unknown]
  - Atrial flutter [Unknown]
  - Bronchitis [Unknown]
  - Atrial enlargement [Unknown]

NARRATIVE: CASE EVENT DATE: 20230605
